FAERS Safety Report 8070093-1 (Version None)
Quarter: 2012Q1

REPORT INFORMATION
  Report Type: 
  Country: None (occurrence: None)
  Receive Date: 20120125
  Receipt Date: 20120125
  Transmission Date: 20120608
  Serious: Yes (Hospitalization)
  Sender: FDA-Public Use
  Company Number: US-PFIZER INC-2007034729

PATIENT
  Sex: Male
  Weight: 94.3 kg

DRUGS (11)
  1. SYNTHROID [Concomitant]
     Route: 048
     Dates: start: 20051214
  2. SUNITINIB MALATE [Suspect]
     Indication: RENAL CANCER METASTATIC
     Dosage: 37.5 MG, 1X/DAY
     Route: 048
     Dates: start: 20070103, end: 20070424
  3. BIAFINE [Concomitant]
     Route: 061
     Dates: start: 20060112, end: 20070430
  4. BENICAR [Concomitant]
     Route: 048
     Dates: start: 20070423, end: 20070430
  5. METOPROLOL [Concomitant]
     Route: 048
     Dates: start: 20070428, end: 20070430
  6. BENZONATATE [Concomitant]
     Route: 048
     Dates: start: 20051031
  7. FUROSEMIDE [Concomitant]
     Route: 048
     Dates: start: 20060622
  8. HYTRIN [Concomitant]
     Route: 048
     Dates: start: 20050701, end: 20070430
  9. COMPAZINE [Concomitant]
     Route: 048
     Dates: start: 20051108, end: 20070430
  10. LOVENOX [Suspect]
     Dosage: UNK
     Route: 058
     Dates: start: 20070326, end: 20070505
  11. HYCODAN [Concomitant]
     Route: 048
     Dates: start: 20051121

REACTIONS (3)
  - ARRHYTHMIA SUPRAVENTRICULAR [None]
  - DYSPNOEA [None]
  - HAEMOTHORAX [None]
